FAERS Safety Report 9526431 (Version 1)
Quarter: 2013Q3

REPORT INFORMATION
  Report Type: Spontaneous
  Country: US (occurrence: US)
  Receive Date: 20130916
  Receipt Date: 20130916
  Transmission Date: 20140515
  Serious: Yes (Hospitalization, Other)
  Sender: FDA-Public Use
  Company Number: US-ACTAVIS-2013-15792

PATIENT
  Age: 58 Year
  Sex: Male

DRUGS (9)
  1. TACROLIMUS (WATSON LABORATORIES) [Suspect]
     Indication: IMMUNOSUPPRESSANT DRUG THERAPY
     Dosage: 1 MG, BID
     Route: 060
  2. TACROLIMUS (WATSON LABORATORIES) [Interacting]
     Dosage: 1 MG, SINGLE, ON THE EVENING OF POSTOPERATIVE DAY 5
     Route: 048
  3. TACROLIMUS (WATSON LABORATORIES) [Interacting]
     Dosage: 0.5 MG, SINGLE, ON POSTOPERATIVE DAY 8
     Route: 048
  4. RITONAVIR [Interacting]
     Indication: ANTIRETROVIRAL THERAPY
     Dosage: 100 MG, BID
     Route: 065
  5. EMTRICITABINE [Concomitant]
     Indication: ANTIRETROVIRAL THERAPY
     Dosage: 200 MG, ONCE DAILY
     Route: 065
  6. TENOFOVIR [Concomitant]
     Indication: ANTIRETROVIRAL THERAPY
     Dosage: 300 MG, ONCE DAILY
     Route: 065
  7. METHYLPREDNISOLONE [Concomitant]
     Indication: IMMUNOSUPPRESSANT DRUG THERAPY
     Dosage: 1000 MG, UNKNOWN
     Route: 042
  8. PREDNISONE [Concomitant]
     Indication: IMMUNOSUPPRESSANT DRUG THERAPY
     Dosage: TAPER TO 5 MG DAILY
     Route: 048
  9. MYCOPHENOLATE MOFETIL [Concomitant]
     Indication: IMMUNOSUPPRESSANT DRUG THERAPY
     Dosage: 1500 MG, BID
     Route: 065

REACTIONS (7)
  - Confusional state [Recovered/Resolved]
  - Tremor [Recovered/Resolved]
  - Headache [Recovered/Resolved]
  - Blood creatinine increased [Recovered/Resolved]
  - Chemotherapeutic drug level above therapeutic [Recovered/Resolved]
  - Drug interaction [Recovered/Resolved]
  - Intercepted drug administration error [Recovered/Resolved]
